FAERS Safety Report 12529514 (Version 1)
Quarter: 2016Q3

REPORT INFORMATION
  Report Type: Spontaneous
  Country: IT (occurrence: IT)
  Receive Date: 20160706
  Receipt Date: 20160706
  Transmission Date: 20161109
  Serious: Yes (Other)
  Sender: FDA-Public Use
  Company Number: IT-ROCHE-1786763

PATIENT
  Age: 75 Year
  Sex: Female

DRUGS (1)
  1. CEFTRIAXONE. [Suspect]
     Active Substance: CEFTRIAXONE
     Indication: BRONCHITIS
     Route: 030

REACTIONS (7)
  - Oedema [Recovering/Resolving]
  - Vulvovaginal burning sensation [Recovering/Resolving]
  - Dyspnoea [Recovering/Resolving]
  - Anorectal discomfort [Recovering/Resolving]
  - Anorectal swelling [Recovering/Resolving]
  - Oedema genital [Recovering/Resolving]
  - Lip oedema [Recovering/Resolving]

NARRATIVE: CASE EVENT DATE: 20160429
